FAERS Safety Report 8232143-9 (Version None)
Quarter: 2012Q1

REPORT INFORMATION
  Report Type: 
  Country: None (occurrence: None)
  Receive Date: 20120323
  Receipt Date: 20120313
  Transmission Date: 20120608
  Serious: Yes (Other)
  Sender: FDA-Public Use
  Company Number: DE-ROCHE-1050118

PATIENT
  Sex: Female

DRUGS (2)
  1. ROFERON-A [Suspect]
     Route: 058
     Dates: start: 20090101
  2. ROFERON-A [Suspect]
     Indication: MALIGNANT MELANOMA
     Route: 058
     Dates: start: 20040101, end: 20090101

REACTIONS (1)
  - METASTASIS [None]
